FAERS Safety Report 20393603 (Version 1)
Quarter: 2022Q1

REPORT INFORMATION
  Report Type: Spontaneous
  Country: CH (occurrence: CH)
  Receive Date: 20220128
  Receipt Date: 20220128
  Transmission Date: 20220424
  Serious: Yes (Other)
  Sender: FDA-Public Use
  Company Number: CH-BRISTOL-MYERS SQUIBB COMPANY-BMS-2022-008564

PATIENT
  Age: 64 Year
  Sex: Male
  Weight: 79 kg

DRUGS (23)
  1. NIVOLUMAB [Suspect]
     Active Substance: NIVOLUMAB
     Indication: Malignant melanoma
     Dosage: UNK
     Route: 065
  2. IPILIMUMAB [Suspect]
     Active Substance: IPILIMUMAB
     Indication: Malignant melanoma
     Dosage: UNK
     Route: 065
  3. VALDOXAN [Concomitant]
     Active Substance: AGOMELATINE
     Indication: Depression
     Dosage: 25 MILLIGRAM/ AT NIGHT
     Route: 048
  4. NAPROXEN [Concomitant]
     Active Substance: NAPROXEN
     Indication: Cancer pain
     Dosage: 500 MILLIGRAM, PRN
     Route: 048
     Dates: start: 20211201
  5. ACETAMINOPHEN [Concomitant]
     Active Substance: ACETAMINOPHEN
     Indication: Cancer pain
     Dosage: 500 MILLIGRAM, PRN
     Route: 048
     Dates: start: 20210429
  6. ACETAMINOPHEN [Concomitant]
     Active Substance: ACETAMINOPHEN
     Dosage: 500 MILLIGRAM, PRN
     Route: 042
     Dates: start: 20210429
  7. NOVALGIN (METAMIZOLE SODIUM) [Concomitant]
     Active Substance: METAMIZOLE SODIUM
     Indication: Cancer pain
     Dosage: 500 MILLIGRAM, PRN
     Route: 048
     Dates: start: 20210429
  8. NOVALGIN (METAMIZOLE SODIUM) [Concomitant]
     Active Substance: METAMIZOLE SODIUM
     Dosage: 500 MILLIGRAM, PRN
     Route: 042
     Dates: start: 20210429
  9. CHOLECALCIFEROL [Concomitant]
     Active Substance: CHOLECALCIFEROL
     Indication: Osteoporosis prophylaxis
     Dosage: 4000 IE/MI 5M1, QWK
     Route: 048
  10. BUTYLSCOPOLAMINE BROMIDE [Concomitant]
     Active Substance: BUTYLSCOPOLAMINE BROMIDE
     Indication: Abdominal pain
     Dosage: 10 MG 1-5 TABI/TAG/PRN
     Route: 048
     Dates: start: 20210330
  11. HYLO DUAL [Concomitant]
     Indication: Eyelid oedema
     Dosage: 6 TIME /DAY 1 DROP IN EACH EYE
     Route: 047
     Dates: start: 20210601
  12. HYLO DUAL [Concomitant]
     Indication: Blepharitis
  13. BLEPHACLEAN [Concomitant]
     Indication: Eyelid oedema
     Dosage: IN BOTH EYES, BID
     Route: 047
     Dates: start: 20210601
  14. BLEPHACLEAN [Concomitant]
     Indication: Blepharitis
  15. VITAMIN A STREULI [RETINOL] [Concomitant]
     Indication: Eyelid oedema
     Dosage: 6 TIME PER DAY/ON BOTH LIDS
     Route: 047
     Dates: start: 20210601
  16. VITAMIN A STREULI [RETINOL] [Concomitant]
     Indication: Blepharitis
  17. HYDROCORTISONE [Concomitant]
     Active Substance: HYDROCORTISONE
     Indication: Cortisol decreased
     Dosage: 10 MILLIGRAM/ TBL
     Route: 065
  18. METFORMIN [Concomitant]
     Active Substance: METFORMIN HYDROCHLORIDE
     Indication: Diabetes mellitus
     Dosage: 500 MILLIGRAM, BID
     Route: 065
     Dates: start: 20210805
  19. LINAGLIPTIN [Concomitant]
     Active Substance: LINAGLIPTIN
     Indication: Diabetes mellitus
     Dosage: 5 MILLIGRAM, QD/TBL
     Route: 065
     Dates: start: 20210805
  20. PREGABALIN [Concomitant]
     Active Substance: PREGABALIN
     Indication: Product used for unknown indication
     Dosage: 75 MILLIGRAM, QD/ TBL
     Route: 065
     Dates: start: 20211221
  21. NOVORAPID [Concomitant]
     Active Substance: INSULIN ASPART
     Indication: Diabetes mellitus
     Dosage: UNK, PRN
     Route: 058
     Dates: start: 20210911
  22. LEVEMIR [Concomitant]
     Active Substance: INSULIN DETEMIR
     Indication: Diabetes mellitus
     Dosage: UNK, PRN
     Route: 058
  23. TOUJEO [Concomitant]
     Active Substance: INSULIN GLARGINE
     Indication: Diabetes mellitus
     Dosage: 14 E MORNING
     Route: 065
     Dates: start: 20211208

REACTIONS (12)
  - Malignant neoplasm progression [Unknown]
  - Neutropenia [Unknown]
  - Electrocardiogram QT prolonged [Unknown]
  - Polyneuropathy [Unknown]
  - Sepsis [Unknown]
  - Hypophysitis [Unknown]
  - Anaemia [Unknown]
  - Eczema [Unknown]
  - Sleep disorder [Unknown]
  - Weight decreased [Unknown]
  - Constipation [Unknown]
  - Headache [Unknown]
